FAERS Safety Report 9838392 (Version 1)
Quarter: 2013Q4

REPORT INFORMATION
  Report Type: Spontaneous
  Country: US (occurrence: None)
  Receive Date: 20131206
  Receipt Date: 20131206
  Transmission Date: 20140711
  Serious: Yes (Hospitalization)
  Sender: FDA-Public Use
  Company Number: 375367

PATIENT
  Age: 42 Year
  Sex: Male
  Weight: 106.14 kg

DRUGS (5)
  1. NOVOLOG [Suspect]
     Indication: TYPE 2 DIABETES MELLITUS
     Dosage: SLIDING SCALE TID AC
     Route: 058
     Dates: start: 2012
  2. LANTUS [Suspect]
     Indication: TYPE 2 DIABETES MELLITUS
     Dosage: HS
     Route: 058
  3. METFORMIN (METFORMIN) [Concomitant]
  4. LISINOPRIL (LISINOPRIL) [Concomitant]
  5. ZOCOR (SIMVASTATIN) [Concomitant]

REACTIONS (6)
  - Diabetic ketoacidosis [None]
  - Pancreatic disorder [None]
  - Treatment noncompliance [None]
  - Drug ineffective [None]
  - Expired drug administered [None]
  - Glycosylated haemoglobin increased [None]
